FAERS Safety Report 8430672-6 (Version None)
Quarter: 2012Q2

REPORT INFORMATION
  Report Type: 
  Country: None (occurrence: None)
  Receive Date: 20120323
  Receipt Date: 20110603
  Transmission Date: 20120825
  Serious: Yes (Other)
  Sender: FDA-Public Use
  Company Number: 163-21880-11060930

PATIENT
  Age: 72 Year
  Sex: Female

DRUGS (4)
  1. REVLIMID [Suspect]
     Indication: MULTIPLE MYELOMA
     Dosage: 15 MG, 1 IN 1 D, PO; 25 MG, 1 IN 1 D, PO
     Route: 048
     Dates: start: 20090601
  2. REVLIMID [Suspect]
     Indication: MULTIPLE MYELOMA
     Dosage: 15 MG, 1 IN 1 D, PO; 25 MG, 1 IN 1 D, PO
     Route: 048
     Dates: start: 20091201
  3. DEXAMETHASONE [Concomitant]
  4. VELCADE [Concomitant]

REACTIONS (2)
  - NEUROPATHY PERIPHERAL [None]
  - BONE MARROW FAILURE [None]
